FAERS Safety Report 9380667 (Version 1)
Quarter: 2013Q3

REPORT INFORMATION
  Report Type: Report from Study
  Country: CA (occurrence: CA)
  Receive Date: 20130702
  Receipt Date: 20130702
  Transmission Date: 20140515
  Serious: Yes (Other)
  Sender: FDA-Public Use
  Company Number: CA-JNJFOC-20130617041

PATIENT
  Sex: Female
  Weight: 41 kg

DRUGS (1)
  1. STELARA [Suspect]
     Indication: CROHN^S DISEASE
     Route: 065
     Dates: start: 20130226, end: 20130327

REACTIONS (1)
  - Hepatic enzyme increased [Unknown]
